FAERS Safety Report 8029133-8 (Version None)
Quarter: 2012Q1

REPORT INFORMATION
  Report Type: 
  Country: None (occurrence: None)
  Receive Date: 20120106
  Receipt Date: 20120102
  Transmission Date: 20120608
  Serious: Yes (Other)
  Sender: FDA-Public Use
  Company Number: PHHY2011FR21337

PATIENT
  Sex: Female

DRUGS (9)
  1. PIASCLEDINE [Suspect]
     Indication: OSTEOARTHRITIS
     Dosage: UNK UKN, UNK
     Route: 048
  2. MOVIPREP [Suspect]
     Indication: CONSTIPATION
     Dosage: 1 DF, QD
     Route: 048
  3. XYZAL [Suspect]
     Indication: SEASONAL ALLERGY
     Dosage: 1 DF, QD
     Route: 048
  4. SPIRIVA [Concomitant]
     Indication: BRONCHOPNEUMOPATHY
     Dosage: 18 UG, QD
     Dates: start: 20101125
  5. VOLTAREN [Suspect]
     Indication: OSTEOARTHRITIS
     Dosage: 50 MG, TID
     Route: 048
  6. FEMARA [Suspect]
     Indication: BREAST CANCER
     Dosage: 2.5 MG, QD
     Route: 048
     Dates: start: 20060101, end: 20110901
  7. INDAPAMIDE [Suspect]
     Indication: HYPERTENSION
     Dosage: 2 MG/0.625 MG, QD
     Route: 048
  8. ATORVASTATIN CALCIUM [Suspect]
     Indication: HYPERCHOLESTEROLAEMIA
     Dosage: 10 MG, QD
     Route: 048
     Dates: start: 20080801
  9. BONIVA [Suspect]
     Indication: OSTEOPOROSIS
     Dosage: 1 DF, QMO
     Route: 048
     Dates: start: 20070401

REACTIONS (8)
  - MALAISE [None]
  - HEARING IMPAIRED [None]
  - VISUAL IMPAIRMENT [None]
  - ERUCTATION [None]
  - FALL [None]
  - HYPOTONIA [None]
  - SENSE OF OPPRESSION [None]
  - DYSPNOEA [None]
